FAERS Safety Report 11689119 (Version 2)
Quarter: 2015Q4

REPORT INFORMATION
  Report Type: Report from Study
  Country: JP (occurrence: JP)
  Receive Date: 20151102
  Receipt Date: 20151211
  Transmission Date: 20160304
  Serious: Yes (Death, Hospitalization, Other)
  Sender: FDA-Public Use
  Company Number: JP-ROCHE-1591001

PATIENT
  Age: 73 Year
  Sex: Male
  Weight: 41 kg

DRUGS (9)
  1. TOLEDOMIN [Concomitant]
     Active Substance: MILNACIPRAN HYDROCHLORIDE
     Indication: DEPRESSION
     Route: 048
     Dates: end: 20150527
  2. TOCILIZUMAB [Suspect]
     Active Substance: TOCILIZUMAB
     Indication: RHEUMATOID ARTHRITIS
     Dosage: MOST RECENT DOSE PRIOR TO THE EVENTS WAS RECEIVED ON 07/MAY/2015
     Route: 058
     Dates: start: 20150422
  3. MICARDIS [Concomitant]
     Active Substance: TELMISARTAN
     Indication: HYPERTENSION
     Route: 048
     Dates: end: 20150527
  4. PARIET [Concomitant]
     Active Substance: RABEPRAZOLE SODIUM
     Indication: GASTRITIS
     Route: 048
     Dates: end: 20150527
  5. CELECOX [Concomitant]
     Active Substance: CELECOXIB
     Indication: BACK PAIN
     Route: 048
     Dates: end: 20150527
  6. DEPAKENE [Concomitant]
     Active Substance: VALPROIC ACID
     Indication: EPILEPSY
     Route: 048
     Dates: end: 20150527
  7. RIMATIL [Concomitant]
     Active Substance: BUCILLAMINE
     Indication: RHEUMATOID ARTHRITIS
     Route: 048
     Dates: end: 20150527
  8. AMLODIPINE [Concomitant]
     Active Substance: AMLODIPINE BESYLATE
     Indication: HYPERTENSION
     Route: 048
     Dates: end: 20150527
  9. FLUITRAN [Concomitant]
     Active Substance: TRICHLORMETHIAZIDE
     Indication: HYPERTENSION
     Route: 048
     Dates: end: 20150527

REACTIONS (4)
  - Enteritis infectious [Fatal]
  - Pneumonia aspiration [Unknown]
  - Sepsis [Unknown]
  - Diarrhoea [Fatal]

NARRATIVE: CASE EVENT DATE: 20150509
